FAERS Safety Report 16126668 (Version 1)
Quarter: 2019Q1

REPORT INFORMATION
  Report Type: Spontaneous
  Country: US (occurrence: US)
  Receive Date: 20190222
  Receipt Date: 20190222
  Transmission Date: 20190418
  Serious: Yes (Hospitalization)
  Sender: FDA-Public Use
  Company Number: None

PATIENT
  Age: 65 Year
  Sex: Female

DRUGS (15)
  1. ATORVASTATIN [Concomitant]
     Active Substance: ATORVASTATIN
  2. NITROGLYCERIN. [Concomitant]
     Active Substance: NITROGLYCERIN
  3. SPIRONOLACTONE. [Concomitant]
     Active Substance: SPIRONOLACTONE
  4. REPATHA [Suspect]
     Active Substance: EVOLOCUMAB
     Indication: HYPERCHOLESTEROLAEMIA
  5. REPATHA [Suspect]
     Active Substance: EVOLOCUMAB
     Indication: CARDIAC FAILURE CONGESTIVE
  6. DIPHENHIST [Concomitant]
     Active Substance: DIPHENHYDRAMINE HYDROCHLORIDE
  7. CLOPIDOGREL [Concomitant]
     Active Substance: CLOPIDOGREL BISULFATE
  8. FLUOXETINE [Concomitant]
     Active Substance: FLUOXETINE HYDROCHLORIDE
  9. REPATHA [Suspect]
     Active Substance: EVOLOCUMAB
     Indication: HYPERLIPIDAEMIA
     Route: 058
     Dates: start: 20180626
  10. FENTANYL. [Concomitant]
     Active Substance: FENTANYL
  11. LEVOTHYROXIN [Concomitant]
     Active Substance: LEVOTHYROXINE
  12. CLONAZEPAM. [Concomitant]
     Active Substance: CLONAZEPAM
  13. FUROSEMIDE. [Concomitant]
     Active Substance: FUROSEMIDE
  14. NITRO-DUR [Concomitant]
     Active Substance: NITROGLYCERIN
  15. POTASSIUM CHLORIDE. [Concomitant]
     Active Substance: POTASSIUM CHLORIDE

REACTIONS (4)
  - Cardiac failure congestive [None]
  - Myocardial infarction [None]
  - Heart valve incompetence [None]
  - Dyspnoea [None]

NARRATIVE: CASE EVENT DATE: 201806
